FAERS Safety Report 12105812 (Version 2)
Quarter: 2016Q2

REPORT INFORMATION
  Report Type: Spontaneous
  Country: US (occurrence: US)
  Receive Date: 20160223
  Receipt Date: 20160505
  Transmission Date: 20160815
  Serious: No
  Sender: FDA-Public Use
  Company Number: US-PFIZER INC-2016049418

PATIENT
  Age: 80 Year
  Sex: Female
  Weight: 78.93 kg

DRUGS (2)
  1. XELJANZ [Suspect]
     Active Substance: TOFACITINIB CITRATE
     Indication: GAIT DISTURBANCE
     Dosage: 5 MG, 2X/DAY
     Route: 048
     Dates: start: 20150919, end: 20160204
  2. XELJANZ [Suspect]
     Active Substance: TOFACITINIB CITRATE
     Indication: RHEUMATOID ARTHRITIS

REACTIONS (5)
  - Sinusitis [Unknown]
  - Weight increased [Unknown]
  - Urinary tract infection [Recovering/Resolving]
  - Secretion discharge [Not Recovered/Not Resolved]
  - Abdominal distension [Not Recovered/Not Resolved]

NARRATIVE: CASE EVENT DATE: 201512
